FAERS Safety Report 21542943 (Version 1)
Quarter: 2022Q4

REPORT INFORMATION
  Report Type: Spontaneous
  Country: BR (occurrence: BR)
  Receive Date: 20221102
  Receipt Date: 20221102
  Transmission Date: 20230113
  Serious: Yes (Other)
  Sender: FDA-Public Use
  Company Number: ALC2022BR005047

PATIENT
  Age: 68 Year
  Sex: Female

DRUGS (4)
  1. AZOPT [Suspect]
     Active Substance: BRINZOLAMIDE
     Indication: Glaucoma
     Dosage: 5 ML, Q12H
     Route: 065
  2. AZOPT [Suspect]
     Active Substance: BRINZOLAMIDE
     Dosage: 5 ML, Q12H
     Route: 065
  3. AZOPT [Suspect]
     Active Substance: BRINZOLAMIDE
     Dosage: 5 ML, Q12H
     Route: 065
  4. BIMATOPROST [Concomitant]
     Active Substance: BIMATOPROST
     Indication: Product used for unknown indication
     Dosage: UNK
     Route: 065

REACTIONS (6)
  - Cerebrovascular accident [Unknown]
  - Malaise [Unknown]
  - Pain [Unknown]
  - Visual impairment [Unknown]
  - Product packaging issue [Unknown]
  - Drug ineffective [Unknown]

NARRATIVE: CASE EVENT DATE: 20210101
